FAERS Safety Report 25563127 (Version 2)
Quarter: 2025Q3

REPORT INFORMATION
  Report Type: Spontaneous
  Country: US (occurrence: US)
  Receive Date: 20250716
  Receipt Date: 20250721
  Transmission Date: 20251021
  Serious: Yes (Other)
  Sender: GE HEALTHCARE
  Company Number: US-GE HEALTHCARE-2025CSU009198

PATIENT
  Age: 89 Year
  Sex: Male

DRUGS (8)
  1. VIZAMYL [Suspect]
     Active Substance: FLUTEMETAMOL F-18
     Indication: Imaging procedure
     Route: 065
  2. HYDROCHLOROTHIAZIDE [Concomitant]
     Active Substance: HYDROCHLOROTHIAZIDE
  3. AMLODIPINE [Concomitant]
     Active Substance: AMLODIPINE BESYLATE
  4. TERAZOSIN [Concomitant]
     Active Substance: TERAZOSIN HYDROCHLORIDE
  5. Artificial tears [Concomitant]
  6. DOCUSATE [Concomitant]
     Active Substance: DOCUSATE
  7. LATANOPROST [Concomitant]
     Active Substance: LATANOPROST
  8. METHOCARBAMOL [Concomitant]
     Active Substance: METHOCARBAMOL

REACTIONS (6)
  - Hypertension [Recovered/Resolved]
  - Hyperhidrosis [Recovered/Resolved]
  - Cold sweat [Recovered/Resolved]
  - Chest pain [Recovered/Resolved]
  - Back pain [Recovered/Resolved]
  - Flushing [Recovered/Resolved]

NARRATIVE: CASE EVENT DATE: 20250707
